FAERS Safety Report 6830616-4 (Version None)
Quarter: 2010Q3

REPORT INFORMATION
  Report Type: 
  Country: None (occurrence: None)
  Receive Date: 20100712
  Receipt Date: 20100702
  Transmission Date: 20110219
  Serious: Yes (Hospitalization)
  Sender: FDA-Public Use
  Company Number: FR-KINGPHARMUSA00001-K201000839

PATIENT
  Age: 91 Year
  Sex: Male

DRUGS (6)
  1. ALTACE [Suspect]
     Dosage: UNK
     Route: 048
  2. DIAMICRON [Suspect]
     Dosage: UNK
     Route: 048
  3. CELECTOL [Concomitant]
  4. PROSCAR [Concomitant]
  5. TELFAST [Concomitant]
  6. LEXOMIL [Concomitant]

REACTIONS (3)
  - FALL [None]
  - GENERAL PHYSICAL HEALTH DETERIORATION [None]
  - THROMBOCYTOPENIA [None]
